FAERS Safety Report 11316208 (Version 1)
Quarter: 2015Q3

REPORT INFORMATION
  Report Type: Spontaneous
  Country: US (occurrence: US)
  Receive Date: 20150728
  Receipt Date: 20150728
  Transmission Date: 20151125
  Serious: Yes (Other)
  Sender: FDA-Public Use
  Company Number: US-ACTAVIS-2015-15439

PATIENT
  Age: 40 Year
  Sex: Female

DRUGS (2)
  1. OXYCODONE [Concomitant]
     Active Substance: OXYCODONE
     Indication: PAIN
     Dosage: 15 MG, 12 TABLETS DAILY
     Route: 048
  2. FENTANYL-100 (WATSON LABORATORIES) [Suspect]
     Active Substance: FENTANYL
     Indication: PAIN
     Dosage: 1 PATCH, EVERY OTHER DAY
     Route: 062
     Dates: start: 20150701

REACTIONS (10)
  - Fall [Unknown]
  - Joint injury [Unknown]
  - Wrong technique in product usage process [Unknown]
  - Gait disturbance [Unknown]
  - Thinking abnormal [Unknown]
  - Somnolence [Unknown]
  - Feeling drunk [Unknown]
  - Application site erythema [Unknown]
  - Incoherent [Unknown]
  - Contusion [Unknown]

NARRATIVE: CASE EVENT DATE: 20150701
